FAERS Safety Report 5338757-8 (Version None)
Quarter: 2007Q2

REPORT INFORMATION
  Report Type: 
  Country: None (occurrence: None)
  Receive Date: 20070530
  Receipt Date: 20070516
  Transmission Date: 20071010
  Serious: Yes (Other)
  Sender: FDA-Public Use
  Company Number: GB-AMGEN-US168164

PATIENT
  Sex: Female
  Weight: 82.55 kg

DRUGS (3)
  1. ENBREL [Suspect]
     Indication: JUVENILE ARTHRITIS
     Route: 058
     Dates: start: 20050322, end: 20060120
  2. ENBREL [Suspect]
     Route: 058
     Dates: start: 20060121, end: 20060126
  3. ENBREL [Suspect]
     Route: 058
     Dates: start: 20060127

REACTIONS (3)
  - ACCIDENTAL OVERDOSE [None]
  - INAPPROPRIATE SCHEDULE OF DRUG ADMINISTRATION [None]
  - JOINT STIFFNESS [None]
